FAERS Safety Report 7623554-0 (Version None)
Quarter: 2011Q3

REPORT INFORMATION
  Report Type: 
  Country: None (occurrence: None)
  Receive Date: 20110720
  Receipt Date: 20110705
  Transmission Date: 20111222
  Serious: Yes (Hospitalization)
  Sender: FDA-Public Use
  Company Number: US-SANOFI-AVENTIS-2011SA044498

PATIENT
  Age: 67 Year
  Sex: Male
  Weight: 121 kg

DRUGS (10)
  1. NEBIVOLOL [Concomitant]
     Route: 065
     Dates: end: 20100610
  2. CLOPIDOGREL [Concomitant]
     Route: 065
     Dates: end: 20110606
  3. VALSARTAN [Concomitant]
     Route: 065
     Dates: end: 20110610
  4. ISOSORBIDE MONONITRATE [Concomitant]
     Route: 065
     Dates: end: 20110610
  5. DABIGATRAN [Concomitant]
     Route: 065
     Dates: end: 20110330
  6. DRONEDARONE HCL [Suspect]
     Indication: ATRIAL FIBRILLATION
     Route: 048
     Dates: start: 20110202
  7. AMLODIPINE [Concomitant]
     Route: 065
     Dates: end: 20110610
  8. ROSUVASTATIN [Concomitant]
     Route: 065
     Dates: end: 20110610
  9. INSULIN [Concomitant]
     Route: 065
  10. NSAID'S [Concomitant]
     Route: 065
     Dates: end: 20110606

REACTIONS (1)
  - GASTROINTESTINAL HAEMORRHAGE [None]
